FAERS Safety Report 9444708 (Version 1)
Quarter: 2013Q3

REPORT INFORMATION
  Report Type: Spontaneous
  Country: US (occurrence: None)
  Receive Date: 20130805
  Receipt Date: 20130805
  Transmission Date: 20140515
  Serious: Yes (Other)
  Sender: FDA-Public Use
  Company Number: NES-AE-13-006

PATIENT
  Age: 55 Year
  Sex: Male

DRUGS (2)
  1. OXYCODONE [Suspect]
     Indication: PAIN
  2. CYCLOBENZAPRINE [Suspect]
     Indication: INTERVERTEBRAL DISCITIS

REACTIONS (2)
  - Serotonin syndrome [None]
  - Drug interaction [None]
